FAERS Safety Report 17340581 (Version 1)
Quarter: 2020Q1

REPORT INFORMATION
  Report Type: Spontaneous
  Country: US (occurrence: US)
  Receive Date: 20200114
  Receipt Date: 20200114
  Transmission Date: 20200409
  Serious: No
  Sender: FDA-Public Use
  Company Number: None

PATIENT
  Sex: Male

DRUGS (2)
  1. GAMMAGARD LIQUID [Suspect]
     Active Substance: HUMAN IMMUNOGLOBULIN G
     Indication: IMMUNODEFICIENCY
     Dosage: ?          OTHER STRENGTH:5 GM/50ML;OTHER DOSE:5 GM;OTHER FREQUENCY:EVERY 4 WEEKS;OTHER ROUTE:PIV?
     Route: 042
     Dates: start: 20191222
  2. GAMMAGARD LIQUID [Suspect]
     Active Substance: HUMAN IMMUNOGLOBULIN G
     Indication: IMMUNODEFICIENCY
     Dosage: ?          OTHER STRENGTH:20 GM/200ML;OTHER DOSE:40 GM;OTHER FREQUENCY:EVERY 4 WEEKS;?
     Route: 042
     Dates: start: 20191222

REACTIONS (4)
  - Feeling abnormal [None]
  - Headache [None]
  - Vomiting [None]
  - Anxiety [None]
